FAERS Safety Report 8451951-2 (Version None)
Quarter: 2012Q2

REPORT INFORMATION
  Report Type: 
  Country: None (occurrence: None)
  Receive Date: 20120620
  Receipt Date: 20120325
  Transmission Date: 20120825
  Serious: No
  Sender: FDA-Public Use
  Company Number: US-VERTEX PHARMACEUTICALS INC.-AE-2012-004336

PATIENT
  Sex: Female
  Weight: 54.48 kg

DRUGS (5)
  1. SYTHROID [Concomitant]
  2. PEGASYS [Concomitant]
     Indication: HEPATITIS C
     Route: 058
     Dates: start: 20120316
  3. TRAZODONE HCL [Concomitant]
  4. INCIVEK [Suspect]
     Indication: HEPATITIS C
     Route: 048
     Dates: start: 20120316
  5. RIBAVIRIN [Concomitant]
     Indication: HEPATITIS C
     Route: 048
     Dates: start: 20120316

REACTIONS (6)
  - DIARRHOEA [None]
  - RASH [None]
  - DYSPNOEA EXERTIONAL [None]
  - DECREASED APPETITE [None]
  - FATIGUE [None]
  - NAUSEA [None]
